FAERS Safety Report 4952483-6 (Version None)
Quarter: 2006Q1

REPORT INFORMATION
  Report Type: 
  Country: None (occurrence: None)
  Receive Date: 20060323
  Receipt Date: 20050901
  Transmission Date: 20060701
  Serious: Yes (Death)
  Sender: FDA-Public Use
  Company Number: US-MERCK-0509USA00506

PATIENT
  Age: 84 Year
  Sex: Female

DRUGS (7)
  1. VIOXX [Suspect]
     Indication: OSTEOARTHRITIS
     Route: 048
     Dates: start: 19990601, end: 20000401
  2. VIOXX [Suspect]
     Route: 048
     Dates: start: 20000401
  3. VIOXX [Suspect]
     Indication: BACK PAIN
     Route: 048
     Dates: start: 19990601, end: 20000401
  4. VIOXX [Suspect]
     Route: 048
     Dates: start: 20000401
  5. COVERA-HS [Concomitant]
     Indication: SUPRAVENTRICULAR TACHYCARDIA
     Route: 048
  6. PEPCID [Concomitant]
     Route: 048
  7. FLONASE [Concomitant]
     Route: 065

REACTIONS (19)
  - ACTINIC KERATOSIS [None]
  - ACUTE SINUSITIS [None]
  - BLOOD THYROID STIMULATING HORMONE INCREASED [None]
  - BRONCHITIS [None]
  - BUNDLE BRANCH BLOCK LEFT [None]
  - CARDIAC FAILURE CONGESTIVE [None]
  - CARDIO-RESPIRATORY ARREST [None]
  - CARDIOMYOPATHY [None]
  - CONSTIPATION [None]
  - DIZZINESS [None]
  - FAECES DISCOLOURED [None]
  - ONYCHOMYCOSIS [None]
  - PALPITATIONS [None]
  - PNEUMONIA [None]
  - SINUS BRADYCARDIA [None]
  - SINUSITIS [None]
  - TACHYCARDIA [None]
  - TINEA PEDIS [None]
  - UPPER RESPIRATORY TRACT INFECTION [None]
